FAERS Safety Report 22056103 (Version 1)
Quarter: 2023Q1

REPORT INFORMATION
  Report Type: Spontaneous
  Country: TW (occurrence: TW)
  Receive Date: 20230302
  Receipt Date: 20230302
  Transmission Date: 20230418
  Serious: Yes (Death)
  Sender: FDA-Public Use
  Company Number: TW-BIOCRYST PHARMACEUTICALS, INC.-2023BCR00171

PATIENT
  Sex: Male

DRUGS (1)
  1. RAPIACTA [Suspect]
     Active Substance: PERAMIVIR
     Indication: Influenza
     Dosage: 349 MG, QD
     Route: 042
     Dates: start: 20190627, end: 20190629

REACTIONS (1)
  - Seasonal allergy [Fatal]

NARRATIVE: CASE EVENT DATE: 20190627
